FAERS Safety Report 19956529 (Version 2)
Quarter: 2021Q4

REPORT INFORMATION
  Report Type: Spontaneous
  Country: JP (occurrence: JP)
  Receive Date: 20211014
  Receipt Date: 20211127
  Transmission Date: 20220303
  Serious: Yes (Hospitalization, Other)
  Sender: FDA-Public Use
  Company Number: JP-JNJFOC-20211017284

PATIENT
  Age: 22 Year
  Sex: Female

DRUGS (3)
  1. OPSUMIT [Suspect]
     Active Substance: MACITENTAN
     Indication: Pulmonary arterial hypertension
     Route: 048
     Dates: start: 20161221
  2. EPOPROSTENOL SODIUM [Suspect]
     Active Substance: EPOPROSTENOL SODIUM
     Indication: Pulmonary arterial hypertension
     Route: 041
     Dates: start: 20210918
  3. TREPROSTINIL [Concomitant]
     Active Substance: TREPROSTINIL
     Dosage: DOSE UNKNOWN
     Route: 058

REACTIONS (4)
  - Hospitalisation [Unknown]
  - Hyperthyroidism [Recovering/Resolving]
  - Hyperthyroidism [Recovering/Resolving]
  - Platelet count decreased [Not Recovered/Not Resolved]

NARRATIVE: CASE EVENT DATE: 20210101
